FAERS Safety Report 17157554 (Version 1)
Quarter: 2019Q4

REPORT INFORMATION
  Report Type: Spontaneous
  Country: US (occurrence: US)
  Receive Date: 20191213
  Receipt Date: 20191213
  Transmission Date: 20200122
  Serious: Yes (Death)
  Sender: FDA-Public Use
  Company Number: None

PATIENT
  Age: 85 Year
  Sex: Female

DRUGS (12)
  1. LEVOTHYROXINE. [Concomitant]
     Active Substance: LEVOTHYROXINE
  2. LOSARTAN. [Concomitant]
     Active Substance: LOSARTAN
  3. ELIQUIS [Concomitant]
     Active Substance: APIXABAN
  4. TIZANIDINE. [Concomitant]
     Active Substance: TIZANIDINE
  5. SENSIPAR [Suspect]
     Active Substance: CINACALCET HYDROCHLORIDE
     Indication: HYPERCALCAEMIA
     Route: 048
     Dates: start: 20180307
  6. DEXAMETHASON [Concomitant]
     Active Substance: DEXAMETHASONE
  7. METOPROL SUC [Concomitant]
  8. CEPHALEXIN. [Concomitant]
     Active Substance: CEPHALEXIN
  9. MORPHINE SUL [Concomitant]
     Active Substance: MORPHINE SULFATE
  10. LORAZEPAM. [Concomitant]
     Active Substance: LORAZEPAM
  11. TRAMADOL. [Concomitant]
     Active Substance: TRAMADOL
  12. LIDOCAINE. [Concomitant]
     Active Substance: LIDOCAINE

REACTIONS (1)
  - Death [None]
